FAERS Safety Report 5444497-7 (Version None)
Quarter: 2007Q3

REPORT INFORMATION
  Report Type: 
  Country: None (occurrence: None)
  Receive Date: 20070830
  Receipt Date: 20070823
  Transmission Date: 20080115
  Serious: Yes (Other)
  Sender: FDA-Public Use
  Company Number: 2007326769

PATIENT
  Age: 10 Year
  Sex: Male

DRUGS (6)
  1. LISTERINE AGENT COOL BLUE (UNSPECIFIED) (NO ACTIVE INGREDIENT) [Suspect]
     Indication: DENTAL DISORDER PROPHYLAXIS
     Dosage: UNSPECIFIED ONCE DAILY (1 IN 1 D), ORAL
     Route: 048
     Dates: start: 20070320, end: 20070420
  2. ALBUTEROL [Concomitant]
  3. CREON [Concomitant]
  4. PULMOZYME [Concomitant]
  5. DUNUFOSOL [Concomitant]
  6. ADEKS (VITAMINS NOS, ZINC) [Concomitant]

REACTIONS (7)
  - BACTERIAL INFECTION [None]
  - FATIGUE [None]
  - HEADACHE [None]
  - NASAL CONGESTION [None]
  - PHARYNGOLARYNGEAL PAIN [None]
  - RESPIRATORY DISORDER [None]
  - RHINORRHOEA [None]
